FAERS Safety Report 24459688 (Version 1)
Quarter: 2024Q4

REPORT INFORMATION
  Report Type: Spontaneous
  Country: AT (occurrence: AT)
  Receive Date: 20241018
  Receipt Date: 20241018
  Transmission Date: 20250115
  Serious: No
  Sender: ROCHE
  Company Number: None

PATIENT
  Age: 42 Year
  Sex: Female

DRUGS (1)
  1. MABTHERA [Suspect]
     Active Substance: RITUXIMAB
     Indication: Chemotherapy
     Dosage: LOTS OF INFORMATION AND APPLICATION RECOMMENDATIONS
     Route: 042
     Dates: start: 20240222, end: 20240222

REACTIONS (2)
  - Administration site extravasation [Unknown]
  - Tissue irritation [Unknown]

NARRATIVE: CASE EVENT DATE: 20240222
